FAERS Safety Report 7267116-6 (Version None)
Quarter: 2011Q1

REPORT INFORMATION
  Report Type: 
  Country: None (occurrence: None)
  Receive Date: 20110201
  Receipt Date: 20110128
  Transmission Date: 20110831
  Serious: Yes (Other)
  Sender: FDA-Public Use
  Company Number: CHPA2011GB01694

PATIENT

DRUGS (1)
  1. OTRIVIN [Suspect]
     Dosage: UNK, UNK FOR 3 YEARS
     Route: 045

REACTIONS (1)
  - DRUG DEPENDENCE [None]
